FAERS Safety Report 23124253 (Version 8)
Quarter: 2023Q4

REPORT INFORMATION
  Report Type: Report from Study
  Country: RU (occurrence: RU)
  Receive Date: 20231030
  Receipt Date: 20231228
  Transmission Date: 20240110
  Serious: Yes (Other)
  Sender: FDA-Public Use
  Company Number: RU-002147023-NVSC2023RU231075

PATIENT
  Age: 2 Month
  Sex: Male
  Weight: 5.2 kg

DRUGS (7)
  1. ZOLGENSMA [Suspect]
     Active Substance: ONASEMNOGENE ABEPARVOVEC-XIOI
     Indication: Spinal muscular atrophy
     Dosage: 30.3 ML, ONCE/SINGLE
     Route: 042
     Dates: start: 20231019, end: 20231019
  2. AQUADETRIM D3 [Concomitant]
     Indication: Product used for unknown indication
     Dosage: 2 DRP, QD (15000 IU/ML) (AT IN THE EVENING)
     Route: 048
     Dates: start: 20231015, end: 20231024
  3. AQUADETRIM D3 [Concomitant]
     Dosage: 2 DRP, QD (10000 IU/ML) (AT IN THE EVENING)
     Route: 048
     Dates: start: 20231024
  4. PREDNISOLONE [Concomitant]
     Active Substance: PREDNISOLONE
     Indication: Product used for unknown indication
     Dosage: 5.6 MG, QD (IN THE MORNING)
     Route: 048
     Dates: start: 20231018, end: 20231020
  5. PREDNISOLONE [Concomitant]
     Active Substance: PREDNISOLONE
     Dosage: 5.6 MG, QD (IN THE MORNING)
     Route: 048
     Dates: start: 20231023, end: 20231024
  6. PREDNISOLONE [Concomitant]
     Active Substance: PREDNISOLONE
     Dosage: 0.2 ML, QD
     Route: 030
     Dates: start: 20231021, end: 20231022
  7. PREDNISOLONE [Concomitant]
     Active Substance: PREDNISOLONE
     Dosage: 6.25 MG, QD (IN THE MORNING)
     Route: 048
     Dates: start: 20231024

REACTIONS (13)
  - Decreased appetite [Not Recovered/Not Resolved]
  - Regurgitation [Not Recovered/Not Resolved]
  - Platelet count decreased [Not Recovered/Not Resolved]
  - Red blood cell count decreased [Unknown]
  - Mean cell volume increased [Unknown]
  - Mean cell haemoglobin increased [Unknown]
  - White blood cell count increased [Unknown]
  - Basophil count increased [Unknown]
  - Monocyte count increased [Unknown]
  - Lymphocyte count increased [Unknown]
  - Red blood cell sedimentation rate increased [Unknown]
  - Blood lactate dehydrogenase increased [Unknown]
  - Troponin I increased [Unknown]

NARRATIVE: CASE EVENT DATE: 20231019
